FAERS Safety Report 6237519-7 (Version None)
Quarter: 2009Q2

REPORT INFORMATION
  Report Type: 
  Country: None (occurrence: None)
  Receive Date: 20090619
  Receipt Date: 20090608
  Transmission Date: 20091009
  Serious: Yes (Death, Other)
  Sender: FDA-Public Use
  Company Number: IT-GENENTECH-285143

PATIENT

DRUGS (2)
  1. RITUXIMAB [Suspect]
     Indication: CHRONIC LYMPHOCYTIC LEUKAEMIA
     Dosage: 375 MG/M2, Q4W
  2. FLUDARABINE PHOSPHATE [Suspect]
     Indication: CHRONIC LYMPHOCYTIC LEUKAEMIA
     Route: 065

REACTIONS (6)
  - CHRONIC LYMPHOCYTIC LEUKAEMIA TRANSFORMATION [None]
  - DISEASE PROGRESSION [None]
  - HEPATITIS ACUTE [None]
  - LUNG INFECTION [None]
  - NEUTROPENIA [None]
  - THROMBOCYTOPENIA [None]
